FAERS Safety Report 7953763-2 (Version None)
Quarter: 2011Q4

REPORT INFORMATION
  Report Type: 
  Country: None (occurrence: None)
  Receive Date: 20111202
  Receipt Date: 20111130
  Transmission Date: 20120403
  Serious: Yes (Hospitalization, Other)
  Sender: FDA-Public Use
  Company Number: US-JNJFOC-20110802624

PATIENT
  Sex: Female

DRUGS (3)
  1. LEVAQUIN [Suspect]
     Indication: EAR DISORDER
     Route: 048
     Dates: start: 20020811, end: 20090220
  2. LEVAQUIN [Suspect]
     Indication: EAR INFECTION
     Route: 048
     Dates: start: 20020811, end: 20090220
  3. LEVAQUIN [Suspect]
     Indication: CYSTITIS NONINFECTIVE
     Route: 048
     Dates: start: 20020811, end: 20090220

REACTIONS (3)
  - TENOSYNOVITIS STENOSANS [None]
  - EPICONDYLITIS [None]
  - TENDONITIS [None]
